FAERS Safety Report 9098104 (Version 2)
Quarter: 2013Q1

REPORT INFORMATION
  Report Type: Spontaneous
  Country: KR (occurrence: KR)
  Receive Date: 20130213
  Receipt Date: 20130221
  Transmission Date: 20140127
  Serious: Yes (Hospitalization)
  Sender: FDA-Public Use
  Company Number: KR-PFIZER INC-2013051775

PATIENT
  Age: 53 Year
  Sex: Female

DRUGS (1)
  1. SUTENE [Suspect]
     Indication: METASTATIC RENAL CELL CARCINOMA
     Dosage: 4-WEEK ADMINISTRATION AND 2-WEEK WITHDRAWAL
     Dates: start: 200705

REACTIONS (1)
  - Thrombotic thrombocytopenic purpura [Recovered/Resolved]
